FAERS Safety Report 6328296-X (Version None)
Quarter: 2009Q3

REPORT INFORMATION
  Report Type: 
  Country: None (occurrence: None)
  Receive Date: 20090825
  Receipt Date: 20090605
  Transmission Date: 20100115
  Serious: No
  Sender: FDA-Public Use
  Company Number: US-ABBOTT-09P-163-0578569-00

PATIENT
  Sex: Female

DRUGS (5)
  1. SYNTHROID [Suspect]
     Indication: HYPOTHYROIDISM
     Dates: start: 19940101, end: 20081201
  2. SYNTHROID [Suspect]
     Dates: start: 20081201, end: 20090401
  3. SYNTHROID [Suspect]
     Dates: start: 20090401, end: 20090501
  4. SYNTHROID [Suspect]
     Dosage: ALTERNATING 125MCG + 150MCG DAILY
     Dates: start: 20090501
  5. LEVOTHYROXINE SODIUM [Suspect]
     Indication: HYPOTHYROIDISM

REACTIONS (4)
  - ALOPECIA [None]
  - HAIR TEXTURE ABNORMAL [None]
  - HEADACHE [None]
  - MYALGIA [None]
